FAERS Safety Report 26186370 (Version 1)
Quarter: 2025Q4

REPORT INFORMATION
  Report Type: Spontaneous
  Country: US (occurrence: None)
  Receive Date: 20251219
  Receipt Date: 20251219
  Transmission Date: 20260118
  Serious: Yes (Hospitalization)
  Sender: FDA-CTU
  Company Number: None

PATIENT
  Age: 80 Year
  Sex: Male

DRUGS (26)
  1. ADEMPAS [Suspect]
     Active Substance: RIOCIGUAT
     Indication: Pulmonary hypertension
     Dosage: 2.5MG TID ORAL
     Route: 048
     Dates: start: 20190213
  2. WARFARIN [Concomitant]
     Active Substance: WARFARIN
  3. PREDNISONE [Concomitant]
     Active Substance: PREDNISONE
  4. ACETAMINOPHEN\CODEINE PHOSPHATE [Concomitant]
     Active Substance: ACETAMINOPHEN\CODEINE PHOSPHATE
  5. ALBUTEROL SULFATE [Concomitant]
     Active Substance: ALBUTEROL SULFATE
  6. albuterol neb soln [Concomitant]
  7. ATORVASTATIN [Concomitant]
     Active Substance: ATORVASTATIN
  8. BISOPROLOL [Concomitant]
     Active Substance: BISOPROLOL
  9. calcium citrate- vit D3 [Concomitant]
  10. ESCITALOPRAM [Concomitant]
     Active Substance: ESCITALOPRAM OXALATE
  11. FERROUS SULFATE [Concomitant]
     Active Substance: FERROUS SULFATE
  12. FLONASE [Concomitant]
     Active Substance: FLUTICASONE PROPIONATE
  13. GABAPENTIN [Concomitant]
     Active Substance: GABAPENTIN
  14. glucose chew [Concomitant]
  15. humalog NPH [Concomitant]
  16. HUMALOG [Concomitant]
     Active Substance: INSULIN LISPRO
  17. IPRATROPIUM [Concomitant]
     Active Substance: IPRATROPIUM
  18. MAGNESIUM OXIDE [Concomitant]
     Active Substance: MAGNESIUM OXIDE
  19. MEXILETINE [Concomitant]
     Active Substance: MEXILETINE
  20. MONTELUKAST [Concomitant]
     Active Substance: MONTELUKAST
  21. intranasal oxygen [Concomitant]
  22. PANTOPRAZOLE [Concomitant]
     Active Substance: PANTOPRAZOLE
  23. PROCRIT [Concomitant]
     Active Substance: ERYTHROPOIETIN
  24. TORSEMIDE [Concomitant]
     Active Substance: TORSEMIDE
  25. vitamin b complex-fit C [Concomitant]
  26. WIXELA INHUB [Concomitant]
     Active Substance: FLUTICASONE PROPIONATE\SALMETEROL XINAFOATE

REACTIONS (4)
  - Rectal haemorrhage [None]
  - Haemorrhoidal haemorrhage [None]
  - Anaemia [None]
  - Pneumonia aspiration [None]

NARRATIVE: CASE EVENT DATE: 20251125
